FAERS Safety Report 19390114 (Version 1)
Quarter: 2021Q2

REPORT INFORMATION
  Report Type: Spontaneous
  Country: US (occurrence: US)
  Receive Date: 20210608
  Receipt Date: 20210608
  Transmission Date: 20210717
  Serious: Yes (Hospitalization, Other)
  Sender: FDA-Public Use
  Company Number: US-SA-2021SA150373

PATIENT
  Age: 6 Year
  Sex: Male
  Weight: 16.51 kg

DRUGS (4)
  1. DUPIXENT [Suspect]
     Active Substance: DUPILUMAB
     Indication: CROHN^S DISEASE
     Dosage: 300 MG
     Route: 058
     Dates: start: 20200929
  2. DUPIXENT [Suspect]
     Active Substance: DUPILUMAB
     Indication: IMMUNODEFICIENCY COMMON VARIABLE
  3. DUPIXENT [Suspect]
     Active Substance: DUPILUMAB
     Indication: DERMATITIS ATOPIC
  4. DUPIXENT [Suspect]
     Active Substance: DUPILUMAB
     Indication: EOSINOPHILIC OESOPHAGITIS

REACTIONS (10)
  - Crying [Unknown]
  - Nausea [Unknown]
  - Infusion site irritation [Unknown]
  - Product use in unapproved indication [Unknown]
  - Skin ulcer [Unknown]
  - Headache [Unknown]
  - Infusion site swelling [Unknown]
  - Cellulitis [Unknown]
  - Hypersensitivity [Unknown]
  - Peripheral swelling [Unknown]

NARRATIVE: CASE EVENT DATE: 20200929
